FAERS Safety Report 24959379 (Version 1)
Quarter: 2025Q1

REPORT INFORMATION
  Report Type: Spontaneous
  Country: US (occurrence: US)
  Receive Date: 20250212
  Receipt Date: 20250212
  Transmission Date: 20250408
  Serious: Yes (Death, Hospitalization)
  Sender: DR REDDYS
  Company Number: US-DRL-USA-USA/2025/01/001214

PATIENT
  Age: 78 Year
  Sex: Male

DRUGS (7)
  1. AZACITIDINE [Suspect]
     Active Substance: AZACITIDINE
     Indication: Chronic myeloid leukaemia
  2. AZACITIDINE [Suspect]
     Active Substance: AZACITIDINE
     Indication: Myelodysplastic syndrome/myeloproliferative neoplasm overlap syndrome
  3. METFORMIN [Suspect]
     Active Substance: METFORMIN HYDROCHLORIDE
     Indication: Type 2 diabetes mellitus
  4. VENETOCLAX [Suspect]
     Active Substance: VENETOCLAX
     Indication: Chronic myeloid leukaemia
  5. VENETOCLAX [Suspect]
     Active Substance: VENETOCLAX
     Indication: Myelodysplastic syndrome/myeloproliferative neoplasm overlap syndrome
  6. ARANESP [Suspect]
     Active Substance: DARBEPOETIN ALFA
     Indication: Chronic myeloid leukaemia
  7. ARANESP [Suspect]
     Active Substance: DARBEPOETIN ALFA
     Indication: Myelodysplastic syndrome/myeloproliferative neoplasm overlap syndrome

REACTIONS (8)
  - Fungal infection [Fatal]
  - Central nervous system lesion [Unknown]
  - Bacillus infection [Unknown]
  - Infection [Unknown]
  - Therapeutic product effect incomplete [Unknown]
  - Respiratory distress [Unknown]
  - Encephalopathy [Unknown]
  - Product use in unapproved indication [Unknown]
